FAERS Safety Report 16414594 (Version 2)
Quarter: 2019Q2

REPORT INFORMATION
  Report Type: Spontaneous
  Country: IT (occurrence: IT)
  Receive Date: 20190611
  Receipt Date: 20190619
  Transmission Date: 20190711
  Serious: Yes (Hospitalization, Other)
  Sender: FDA-Public Use
  Company Number: IT-PFIZER INC-2019246565

PATIENT
  Age: 78 Year
  Sex: Male

DRUGS (3)
  1. MULTAQ [Concomitant]
     Active Substance: DRONEDARONE
     Indication: ATRIAL FIBRILLATION
     Dosage: UNK
  2. LYRICA [Suspect]
     Active Substance: PREGABALIN
     Indication: POST HERPETIC NEURALGIA
     Dosage: 300 MG, 2X/DAY
     Route: 048
     Dates: start: 201901, end: 201901
  3. BISOPROLOL [Concomitant]
     Active Substance: BISOPROLOL
     Indication: ATRIAL FIBRILLATION
     Dosage: UNK

REACTIONS (3)
  - Dizziness [Recovered/Resolved]
  - Fall [Recovered/Resolved]
  - Wrist fracture [Recovered/Resolved]

NARRATIVE: CASE EVENT DATE: 201901
